FAERS Safety Report 6338117-7 (Version None)
Quarter: 2009Q3

REPORT INFORMATION
  Report Type: 
  Country: None (occurrence: None)
  Receive Date: 20090902
  Receipt Date: 20090824
  Transmission Date: 20100115
  Serious: Yes (Other)
  Sender: FDA-Public Use
  Company Number: NZ-ROCHE-652759

PATIENT
  Sex: Female

DRUGS (2)
  1. PEG-INTERFERON ALFA 2A (RO 25-8310) [Suspect]
     Indication: HEPATITIS C
     Dosage: DRUG NAME REPORTED AS PEGASYS RBV.
     Route: 065
  2. RIBAVIRIN [Suspect]
     Indication: HEPATITIS C
     Dosage: DRUG NAME REPORTED AS PEGASYS RBV.
     Route: 065

REACTIONS (4)
  - INTERLEUKIN LEVEL [None]
  - LYMPHOMA [None]
  - NEUTROPENIA [None]
  - PROTEIN TOTAL INCREASED [None]
